FAERS Safety Report 10741427 (Version 1)
Quarter: 2015Q1

REPORT INFORMATION
  Report Type: Spontaneous
  Country: US (occurrence: None)
  Receive Date: 20150123
  Receipt Date: 20150123
  Transmission Date: 20150721
  Serious: Yes (Hospitalization)
  Sender: FDA-Public Use
  Company Number: 2015EDG00002

PATIENT
  Age: 60 Year
  Sex: Male
  Weight: 82 kg

DRUGS (10)
  1. AMLODIPINE [Concomitant]
     Active Substance: AMLODIPINE BESYLATE
  2. FLUOXETINE [Suspect]
     Active Substance: FLUOXETINE\FLUOXETINE HYDROCHLORIDE
  3. FENTANYL. [Suspect]
     Active Substance: FENTANYL
  4. DESFLURANE. [Concomitant]
     Active Substance: DESFLURANE
  5. PROPOFOL. [Concomitant]
     Active Substance: PROPOFOL
  6. METHYLENE BLUE. [Suspect]
     Active Substance: METHYLENE BLUE
     Route: 058
  7. SUCCINYLCHOLINE [Concomitant]
     Active Substance: SUCCINYLCHOLINE
  8. ESOMEPRAZOLE [Concomitant]
     Active Substance: ESOMEPRAZOLE
  9. FISH OIL [Concomitant]
     Active Substance: FISH OIL
  10. OLMESARTAN/HYDROCHLOROTHIAZIDE [Concomitant]
     Active Substance: HYDROCHLOROTHIAZIDE\OLMESARTAN MEDOXOMIL

REACTIONS (4)
  - Serotonin syndrome [None]
  - Blood pressure increased [None]
  - Drug interaction [None]
  - Generalised tonic-clonic seizure [None]
